FAERS Safety Report 4652369-0 (Version None)
Quarter: 2005Q2

REPORT INFORMATION
  Report Type: 
  Country: None (occurrence: None)
  Receive Date: 20050502
  Receipt Date: 20050502
  Transmission Date: 20051028
  Serious: Yes (Disabling)
  Sender: FDA-Public Use
  Company Number: None

PATIENT
  Age: 40 Year
  Sex: Female
  Weight: 81.6475 kg

DRUGS (1)
  1. DEPAKOTE ER [Suspect]
     Indication: BIPOLAR DISORDER
     Dosage: 1000 MG  ORAL
     Route: 048
     Dates: start: 19900213, end: 20050331

REACTIONS (6)
  - CRYING [None]
  - DEPRESSION [None]
  - FALL [None]
  - MENSTRUATION IRREGULAR [None]
  - NEOPLASM [None]
  - NUCLEAR MAGNETIC RESONANCE IMAGING ABNORMAL [None]
